FAERS Safety Report 5497427-6 (Version None)
Quarter: 2007Q4

REPORT INFORMATION
  Report Type: 
  Country: None (occurrence: None)
  Receive Date: 20071025
  Receipt Date: 20070725
  Transmission Date: 20080405
  Serious: No
  Sender: FDA-Public Use
  Company Number: US-BRISTOL-MYERS SQUIBB COMPANY-13856794

PATIENT
  Age: 82 Year
  Weight: 81 kg

DRUGS (6)
  1. GLUCOPHAGE XR [Suspect]
     Indication: DIABETES MELLITUS
     Route: 048
     Dates: start: 20070601
  2. TRICOR [Concomitant]
  3. BENICAR [Concomitant]
  4. CENTRUM SILVER [Concomitant]
  5. ASCORBIC ACID [Concomitant]
  6. FOLTX [Concomitant]

REACTIONS (1)
  - SKIN DISCOLOURATION [None]
